FAERS Safety Report 4835693-8 (Version None)
Quarter: 2005Q4

REPORT INFORMATION
  Report Type: 
  Country: None (occurrence: None)
  Receive Date: 20051121
  Receipt Date: 20051108
  Transmission Date: 20060501
  Serious: Yes (Other)
  Sender: FDA-Public Use
  Company Number: 2005152937

PATIENT
  Age: 17 Year
  Sex: Male
  Weight: 68.0396 kg

DRUGS (1)
  1. LISTERINE (MENTHOL, METHYL SALICYLATE, EUCALYPTOL, THYMOL) [Suspect]
     Indication: PHARYNGOLARYNGEAL PAIN
     Dosage: 1/2 OF BOTTLE ONCE, ORAL
     Route: 048
     Dates: start: 20051108, end: 20051108

REACTIONS (3)
  - BLOOD ALCOHOL INCREASED [None]
  - DIFFICULTY IN WALKING [None]
  - INTENTIONAL DRUG MISUSE [None]
